FAERS Safety Report 6495900-5 (Version None)
Quarter: 2009Q4

REPORT INFORMATION
  Report Type: 
  Country: None (occurrence: None)
  Receive Date: 20091214
  Receipt Date: 20090902
  Transmission Date: 20100525
  Serious: No
  Sender: FDA-Public Use
  Company Number: US-BRISTOL-MYERS SQUIBB COMPANY-14755573

PATIENT
  Age: 48 Year
  Sex: Male

DRUGS (2)
  1. ABILIFY [Suspect]
     Indication: MAJOR DEPRESSION
     Dosage: ONE TABLET QAM
     Route: 048
     Dates: start: 20090729
  2. PROZAC [Suspect]
     Indication: DEPRESSION

REACTIONS (2)
  - FLUSHING [None]
  - HEADACHE [None]
